FAERS Safety Report 8408255-3 (Version None)
Quarter: 2012Q2

REPORT INFORMATION
  Report Type: 
  Country: None (occurrence: None)
  Receive Date: 20120529
  Receipt Date: 20050901
  Transmission Date: 20120825
  Serious: Yes (Hospitalization, Other)
  Sender: FDA-Public Use
  Company Number: 02100-JPN-05-0473

PATIENT
  Age: 88 Year
  Sex: Male

DRUGS (13)
  1. PLETAL [Suspect]
     Indication: LACUNAR INFARCTION
     Dosage: 100 MG, BID, ORAL
     Route: 048
     Dates: start: 20040705, end: 20050815
  2. BUP-4 (PROPIVERINE HYDROCHLORIDE) [Concomitant]
  3. SEDIEL (TANDOSPIRONE CITRATE) [Concomitant]
  4. CHLORMADINONE ACETATE TAB [Concomitant]
  5. ASPIRIN [Concomitant]
  6. LANSOPRAZOLE [Concomitant]
  7. SYMMETREL [Concomitant]
  8. VEEN D (GLUCOSE, SODIUM ACETATE, POTASSIUM CHLORIDE, SODIUM LORIDE, CA [Concomitant]
  9. VITAMEDIN (THIAMINE MONOPHOSPHATE DISULFIDE/B6/B12 COMBINED) [Concomitant]
  10. PURSENNID (SENNOSIDE) [Concomitant]
  11. MAGNESIUM OXIDE (MAGNESIUM OXIDE) [Concomitant]
  12. SERMION (NICERGOLINE) [Concomitant]
  13. BUFFERIN [Concomitant]

REACTIONS (8)
  - DEHYDRATION [None]
  - SYNCOPE [None]
  - DIZZINESS [None]
  - DYSARTHRIA [None]
  - MUSCULAR WEAKNESS [None]
  - INFECTION [None]
  - FEELING ABNORMAL [None]
  - DECREASED APPETITE [None]
